FAERS Safety Report 12321959 (Version 1)
Quarter: 2016Q2

REPORT INFORMATION
  Report Type: Spontaneous
  Country: US (occurrence: US)
  Receive Date: 20160502
  Receipt Date: 20160502
  Transmission Date: 20160815
  Serious: No
  Sender: FDA-Public Use
  Company Number: US-GLAXOSMITHKLINE-US2016056530

PATIENT
  Sex: Female

DRUGS (1)
  1. TANZEUM [Suspect]
     Active Substance: ALBIGLUTIDE
     Indication: TYPE 2 DIABETES MELLITUS
     Dosage: 30 MG, WE
     Route: 058
     Dates: end: 201604

REACTIONS (4)
  - Injection site swelling [Recovering/Resolving]
  - Injection site reaction [Recovering/Resolving]
  - Injection site pruritus [Recovering/Resolving]
  - Injection site nodule [Recovering/Resolving]
